FAERS Safety Report 5492876-4 (Version None)
Quarter: 2007Q4

REPORT INFORMATION
  Report Type: 
  Country: None (occurrence: None)
  Receive Date: 20071019
  Receipt Date: 20071011
  Transmission Date: 20080405
  Serious: Yes (Life-Threatening, Hospitalization, Disabling)
  Sender: FDA-Public Use
  Company Number: 216-20785-07100243

PATIENT
  Age: 68 Year
  Sex: Female

DRUGS (7)
  1. THALIDOMIDE [Suspect]
     Indication: MULTIPLE MYELOMA
     Dosage: ORAL
     Route: 048
     Dates: start: 20070621, end: 20070920
  2. SIMVASTATIN [Suspect]
     Indication: HYPERLIPIDAEMIA
     Dosage: 10 MG, DAILY, ORAL
     Route: 048
  3. RAMIPRIL [Concomitant]
  4. ASPIRIN [Concomitant]
  5. METFORMIN HCL [Concomitant]
  6. ACARBOSE [Concomitant]
  7. RANITIDINE [Concomitant]

REACTIONS (6)
  - ARTERIOSCLEROSIS [None]
  - CEREBROVASCULAR ACCIDENT [None]
  - ISCHAEMIA [None]
  - NERVOUS SYSTEM DISORDER [None]
  - RETINAL ARTERY OCCLUSION [None]
  - SICK SINUS SYNDROME [None]
